FAERS Safety Report 4614693-7 (Version None)
Quarter: 2005Q1

REPORT INFORMATION
  Report Type: 
  Country: None (occurrence: None)
  Receive Date: 20050322
  Receipt Date: 20050308
  Transmission Date: 20050727
  Serious: Yes (Hospitalization)
  Sender: FDA-Public Use
  Company Number: FR-JNJFOC-20050302277

PATIENT
  Sex: Female
  Weight: 43 kg

DRUGS (2)
  1. INFLIXIMAB [Suspect]
     Indication: CROHN'S DISEASE
     Route: 042
  2. ENTOCORT [Concomitant]
     Indication: CROHN'S DISEASE

REACTIONS (5)
  - ENTEROCOLONIC FISTULA [None]
  - FISTULA REPAIR [None]
  - ILEECTOMY [None]
  - PERITONITIS [None]
  - SMALL INTESTINAL STENOSIS [None]
